FAERS Safety Report 8872200 (Version 3)
Quarter: 2012Q4

REPORT INFORMATION
  Report Type: 
  Country: NO (occurrence: NO)
  Receive Date: 20121029
  Receipt Date: 20121123
  Transmission Date: 20130627
  Serious: Yes (Life-Threatening)
  Sender: FDA-Public Use
  Company Number: PHHY2012NO096585

PATIENT
  Age: 63 Year
  Sex: Male

DRUGS (4)
  1. VOLTAREN [Suspect]
     Indication: BACK PAIN
     Dosage: 50 mg, one tablet in the morning and one tablet in the evening when needed
  2. ADALAT OROS [Concomitant]
     Dosage: 60 mg, UNK
  3. RENITEC COMP [Concomitant]
  4. ATENOLOL MYLAN [Concomitant]
     Dosage: 50 mg, UNK

REACTIONS (12)
  - Hypersensitivity [Unknown]
  - Obstructive airways disorder [Unknown]
  - Dyspnoea [Unknown]
  - Paraesthesia [Unknown]
  - Visual impairment [Unknown]
  - Gait disturbance [Unknown]
  - Memory impairment [Unknown]
  - Hypokinesia [Unknown]
  - Disturbance in attention [Unknown]
  - Dizziness [Unknown]
  - Discomfort [Unknown]
  - General physical condition abnormal [Unknown]
